FAERS Safety Report 5674542-5 (Version None)
Quarter: 2008Q1

REPORT INFORMATION
  Report Type: 
  Country: None (occurrence: None)
  Receive Date: 20080319
  Receipt Date: 20080319
  Transmission Date: 20080703
  Serious: Yes (Other)
  Sender: FDA-Public Use
  Company Number: None

PATIENT
  Sex: Male
  Weight: 118.8424 kg

DRUGS (1)
  1. PERPHENAZINE [Suspect]
     Indication: SCHIZOAFFECTIVE DISORDER
     Dosage: 16 MG DAILY PO
     Route: 048
     Dates: start: 20060210, end: 20080204

REACTIONS (2)
  - DIAPHRAGMATIC DISORDER [None]
  - TARDIVE DYSKINESIA [None]
